FAERS Safety Report 10024396 (Version 3)
Quarter: 2014Q2

REPORT INFORMATION
  Report Type: Spontaneous
  Country: US (occurrence: US)
  Receive Date: 20140320
  Receipt Date: 20140616
  Transmission Date: 20141212
  Serious: Yes (Hospitalization)
  Sender: FDA-Public Use
  Company Number: US-ENDO PHARMACEUTICALS INC.-OPCR20130163

PATIENT
  Age: 46 Year
  Sex: Female

DRUGS (5)
  1. OPANA ER [Suspect]
     Indication: PAIN
     Route: 048
     Dates: start: 201403
  2. OPANA ER [Suspect]
     Route: 048
     Dates: start: 20140207, end: 201403
  3. OPANA ER [Suspect]
     Route: 048
     Dates: start: 20131112, end: 20140206
  4. OPANA ER [Suspect]
     Route: 048
     Dates: end: 201311
  5. OPANA ER [Suspect]
     Route: 048

REACTIONS (11)
  - Drug withdrawal syndrome [Recovered/Resolved]
  - Pain [Not Recovered/Not Resolved]
  - Adverse event [Recovered/Resolved]
  - Gastric disorder [Not Recovered/Not Resolved]
  - Drug dose omission [Unknown]
  - Fatigue [Unknown]
  - Lethargy [Unknown]
  - Nausea [Not Recovered/Not Resolved]
  - Vomiting [Not Recovered/Not Resolved]
  - Diarrhoea [Recovering/Resolving]
  - Palpitations [Not Recovered/Not Resolved]
